FAERS Safety Report 4633062-7 (Version None)
Quarter: 2005Q2

REPORT INFORMATION
  Report Type: 
  Country: None (occurrence: None)
  Receive Date: 20050325
  Receipt Date: 20050124
  Transmission Date: 20051028
  Serious: No
  Sender: FDA-Public Use
  Company Number: USA030843171

PATIENT
  Age: 79 Year
  Sex: Male
  Weight: 68 kg

DRUGS (5)
  1. FORTEO [Suspect]
     Indication: OSTEOPOROSIS
     Dates: start: 20030610
  2. ANDROGEL [Concomitant]
  3. CALCIUM GLUCONATE [Concomitant]
  4. BOOST [Concomitant]
  5. TIMOLOL MALEATE [Concomitant]

REACTIONS (4)
  - HEART RATE IRREGULAR [None]
  - INJECTION SITE HAEMORRHAGE [None]
  - VISUAL ACUITY REDUCED [None]
  - VISUAL DISTURBANCE [None]
